FAERS Safety Report 9991541 (Version 1)
Quarter: 2014Q1

REPORT INFORMATION
  Report Type: Spontaneous
  Country: US (occurrence: US)
  Receive Date: 20140310
  Receipt Date: 20140310
  Transmission Date: 20141002
  Serious: Yes (Death, Hospitalization, Other)
  Sender: FDA-Public Use
  Company Number: US-PFIZER INC-2014066964

PATIENT
  Age: 15 Month
  Sex: Female
  Weight: 6.35 kg

DRUGS (16)
  1. METHYLPREDNISOLONE SODIUM SUCCINATE [Suspect]
     Indication: RESPIRATORY DISTRESS
     Dosage: 3.5 MG EVERY 12 HOURS FOR 3 D
  2. METHYLPREDNISOLONE SODIUM SUCCINATE [Suspect]
     Indication: ACUTE RESPIRATORY DISTRESS SYNDROME
     Dosage: 12 MG, 1X/DAY
     Route: 042
  3. METHYLPREDNISOLONE SODIUM SUCCINATE [Suspect]
     Dosage: 6 MG ONCE A DAY FOR 2 D
     Route: 042
  4. METHYLPREDNISOLONE SODIUM SUCCINATE [Suspect]
     Dosage: 13 MG FOR 1 DOSE
     Route: 042
  5. METHYLPREDNISOLONE SODIUM SUCCINATE [Suspect]
     Dosage: TAPERED
     Route: 042
  6. METHYLPREDNISOLONE SODIUM SUCCINATE [Suspect]
     Dosage: 0.4 MG TWICE A DAY
     Route: 042
  7. PREDNISOLONE [Suspect]
     Indication: RESPIRATORY DISTRESS
     Dosage: 3.5 MG EVERY 12 HOURS FOR 2 D
  8. PREDNISOLONE [Suspect]
     Dosage: 2 DOSES FOR ONE DAY
  9. BUDESONIDE [Suspect]
     Indication: RESPIRATORY DISTRESS
  10. VARIVAX [Suspect]
     Dosage: UNK
  11. PNEUMOCOCCAL VACCINE [Concomitant]
  12. LANSOPRAZOLE [Concomitant]
     Dosage: UNK
  13. ALBUTEROL [Concomitant]
     Indication: RESPIRATORY DISTRESS
  14. AMOXICILLIN CLAVULANATE [Concomitant]
     Indication: RESPIRATORY DISTRESS
  15. ACYCLOVIR [Concomitant]
     Indication: RESPIRATORY DISTRESS
     Dosage: 200 MG/5 ML SUSPENSION
     Route: 048
  16. ACYCLOVIR [Concomitant]
     Dosage: 130 MG, EVERY 6 HOURS
     Route: 042

REACTIONS (5)
  - Sepsis [Fatal]
  - Multi-organ failure [Fatal]
  - Acute respiratory distress syndrome [Fatal]
  - Pneumonia viral [Unknown]
  - Rash vesicular [Unknown]
